FAERS Safety Report 6524060-7 (Version None)
Quarter: 2009Q4

REPORT INFORMATION
  Report Type: 
  Country: None (occurrence: None)
  Receive Date: 20091231
  Receipt Date: 20091222
  Transmission Date: 20100525
  Serious: Yes (Life-Threatening, Hospitalization)
  Sender: FDA-Public Use
  Company Number: DE-JNJFOC-20091106826

PATIENT
  Age: 16 Year
  Weight: 60 kg

DRUGS (2)
  1. REMICADE [Suspect]
     Indication: JUVENILE ARTHRITIS
     Dosage: TOTAL OF 3 DOSES
     Route: 042
     Dates: end: 20091116
  2. METHOTREXATE [Concomitant]
     Indication: JUVENILE ARTHRITIS
     Route: 058

REACTIONS (1)
  - DEEP VEIN THROMBOSIS [None]
